FAERS Safety Report 24223746 (Version 7)
Quarter: 2025Q1

REPORT INFORMATION
  Report Type: Spontaneous
  Country: DE (occurrence: DE)
  Receive Date: 20240819
  Receipt Date: 20250110
  Transmission Date: 20250409
  Serious: Yes (Hospitalization)
  Sender: SANOFI AVENTIS
  Company Number: DE-SA-SAC20240817000880

PATIENT
  Age: 40 Year
  Sex: Female
  Weight: 84 kg

DRUGS (37)
  1. DUPIXENT [Suspect]
     Active Substance: DUPILUMAB
     Indication: Asthma
     Dosage: 300 MG, QOW
     Route: 058
     Dates: start: 20240711, end: 20240725
  2. ACETAMINOPHEN [Concomitant]
     Active Substance: ACETAMINOPHEN
  3. NIFEDIPINE [Concomitant]
     Active Substance: NIFEDIPINE
  4. APIXABAN [Concomitant]
     Active Substance: APIXABAN
  5. DOXYCYCLINE [Concomitant]
     Active Substance: DOXYCYCLINE
  6. AZITHROMYCIN [Concomitant]
     Active Substance: AZITHROMYCIN
  7. CLINDAMYCIN [Concomitant]
     Active Substance: CLINDAMYCIN
  8. LIDOCAINE [Concomitant]
     Active Substance: LIDOCAINE
  9. CODEINE [Concomitant]
     Active Substance: CODEINE
  10. METAMIZOLE SODIUM [Concomitant]
     Active Substance: METAMIZOLE SODIUM
  11. MORPHINE [Concomitant]
     Active Substance: MORPHINE
  12. ARIXTRA [Concomitant]
     Active Substance: FONDAPARINUX SODIUM
  13. BISOPROLOL [Concomitant]
     Active Substance: BISOPROLOL
  14. CIPROFLOXACIN [Concomitant]
     Active Substance: CIPROFLOXACIN
  15. ARTICAINE HYDROCHLORIDE [Concomitant]
     Active Substance: ARTICAINE HYDROCHLORIDE
  16. AMBROXOL HYDROCHLORIDE [Concomitant]
     Active Substance: AMBROXOL HYDROCHLORIDE
  17. NOSCAPINE [Concomitant]
     Active Substance: NOSCAPINE
  18. COTRIM [Concomitant]
     Active Substance: SULFAMETHOXAZOLE\TRIMETHOPRIM
  19. PENICILLIN G [Concomitant]
     Active Substance: PENICILLIN G
  20. ACETYLCYSTEINE [Concomitant]
     Active Substance: ACETYLCYSTEINE
  21. MCP [Concomitant]
     Active Substance: METOCLOPRAMIDE HYDROCHLORIDE
  22. ACETYLCYSTEINE [Concomitant]
     Active Substance: ACETYLCYSTEINE
     Route: 065
  23. PASPERTIN K [METOCLOPRAMIDE] [Concomitant]
     Route: 065
  24. BENZYLPENICILLIN SODIUM;CLEMIZOLE PENICILLIN [Concomitant]
  25. ENOXAPARIN SODIUM [Concomitant]
     Active Substance: ENOXAPARIN SODIUM
     Indication: Asthma
     Route: 065
  26. XYLOCAINE [Concomitant]
     Active Substance: LIDOCAINE HYDROCHLORIDE
     Route: 065
  27. LYOBEX RETARD [Concomitant]
     Route: 065
  28. CIPROFLOXACIN [Concomitant]
     Active Substance: CIPROFLOXACIN
     Route: 065
  29. CLINDATOP [CLINDAMYCIN] [Concomitant]
     Route: 065
  30. UBISTESIN [Concomitant]
     Route: 065
  31. BISOPROLOL [Concomitant]
     Active Substance: BISOPROLOL
  32. PAREGORICO [Concomitant]
     Route: 065
  33. BISOPROLOL FUMARATE [Concomitant]
     Active Substance: BISOPROLOL FUMARATE
  34. METOCLOPRAMIDE [Concomitant]
     Active Substance: METOCLOPRAMIDE
  35. ACETYLCYSTEINE [Concomitant]
     Active Substance: ACETYLCYSTEINE
  36. CIPROFLOXACIN HYDROCHLORIDE [Concomitant]
     Active Substance: CIPROFLOXACIN HYDROCHLORIDE
  37. CLINDAMYCIN PHOSPHATE [Concomitant]
     Active Substance: CLINDAMYCIN PHOSPHATE

REACTIONS (6)
  - Eczema [Unknown]
  - Flushing [Recovered/Resolved]
  - Erythema [Unknown]
  - Cough [Unknown]
  - Dyspnoea [Unknown]
  - Tachycardia [Unknown]

NARRATIVE: CASE EVENT DATE: 20240701
